FAERS Safety Report 6217408-4 (Version None)
Quarter: 2009Q2

REPORT INFORMATION
  Report Type: 
  Country: None (occurrence: None)
  Receive Date: 20090608
  Receipt Date: 20080916
  Transmission Date: 20091009
  Serious: No
  Sender: FDA-Public Use
  Company Number: A0747964A

PATIENT
  Sex: Female

DRUGS (3)
  1. WELLBUTRIN XL [Suspect]
     Indication: DEPRESSION
     Dosage: 150MG TWICE PER DAY
     Route: 048
     Dates: start: 20080821
  2. BUPROPION HCL [Suspect]
     Indication: DEPRESSION
     Dosage: 150MG TWICE PER DAY
     Route: 048
     Dates: start: 20070601
  3. PROZAC [Concomitant]

REACTIONS (6)
  - AGITATION [None]
  - ANXIETY [None]
  - DRUG EXPOSURE DURING PREGNANCY [None]
  - FEELING HOT [None]
  - LIVE BIRTH [None]
  - MEDICATION ERROR [None]
